FAERS Safety Report 5130610-8 (Version None)
Quarter: 2006Q4

REPORT INFORMATION
  Report Type: 
  Country: None (occurrence: None)
  Receive Date: 20061013
  Receipt Date: 20060929
  Transmission Date: 20070319
  Serious: Yes (Other)
  Sender: FDA-Public Use
  Company Number: US200608003854

PATIENT
  Age: 58 Year
  Sex: Female
  Weight: 73.9 kg

DRUGS (11)
  1. FORTEO [Suspect]
     Indication: OSTEOPOROSIS
     Dosage: 20 UG, DAILY (1/D)
     Dates: start: 20060417
  2. FORTEO [Concomitant]
  3. OXYCONTIN [Concomitant]
  4. PRILOSEC [Concomitant]
  5. THYROID TAB [Concomitant]
  6. LIPITOR [Concomitant]
  7. FOLATE SODIUM (FOLATE SODIUM) [Concomitant]
  8. VICODIN [Concomitant]
  9. XANAX [Concomitant]
  10. REQUIP [Concomitant]
  11. SKELAXIN [Concomitant]

REACTIONS (3)
  - PELVIC FRACTURE [None]
  - POST PROCEDURAL COMPLICATION [None]
  - VITAMIN D DEFICIENCY [None]
